FAERS Safety Report 16868452 (Version 4)
Quarter: 2021Q4

REPORT INFORMATION
  Report Type: Spontaneous
  Country: US (occurrence: US)
  Receive Date: 20190930
  Receipt Date: 20211210
  Transmission Date: 20220303
  Serious: Yes (Hospitalization, Other)
  Sender: FDA-Public Use
  Company Number: US-PFIZER INC-2016089098

PATIENT
  Age: 71 Year
  Sex: Female
  Weight: 78.02 kg

DRUGS (61)
  1. RAPAMUNE [Suspect]
     Active Substance: SIROLIMUS
     Indication: Renal transplant
     Dosage: 1 MG, DAILY (TAKE 2 TABLETS BY MOUTH EVERY 24 HOURS)
     Route: 048
     Dates: start: 2012, end: 2012
  2. RAPAMUNE [Suspect]
     Active Substance: SIROLIMUS
     Dosage: UNK, 3X/DAY
     Dates: start: 201207, end: 20190728
  3. RAPAMUNE [Suspect]
     Active Substance: SIROLIMUS
     Dosage: 3.5 MG, 2X/DAY
     Dates: start: 201207, end: 20190728
  4. RAPAMUNE [Suspect]
     Active Substance: SIROLIMUS
     Dosage: 3.5 MG, 1X/DAY
     Dates: start: 201207, end: 20190728
  5. RAPAMUNE [Suspect]
     Active Substance: SIROLIMUS
     Dosage: 2 MG, 1X/DAY
     Route: 048
     Dates: start: 2019, end: 20190803
  6. ASPIRIN [Concomitant]
     Active Substance: ASPIRIN
     Dosage: 81 MG, UNK
     Route: 048
     Dates: start: 2012, end: 201207
  7. AZATHIOPRINE [Concomitant]
     Active Substance: AZATHIOPRINE
     Dosage: 25 MG, UNK
  8. AZATHIOPRINE [Concomitant]
     Active Substance: AZATHIOPRINE
     Dosage: 50 MG, UNK
  9. AZATHIOPRINE [Concomitant]
     Active Substance: AZATHIOPRINE
     Dosage: UNK
     Dates: end: 2018
  10. BUPROPION [Concomitant]
     Active Substance: BUPROPION
     Dosage: 150 MG, UNK
     Dates: end: 201207
  11. CALCITRIOL [Concomitant]
     Active Substance: CALCITRIOL
     Dosage: 0.25 UG, UNK
  12. CLONAZEPAM [Concomitant]
     Active Substance: CLONAZEPAM
     Dosage: 0.5 MG, UNK
     Route: 048
     Dates: start: 2017
  13. NEORAL [Concomitant]
     Active Substance: CYCLOSPORINE
     Dosage: 100 MG, UNK
  14. DILTIAZEM [Concomitant]
     Active Substance: DILTIAZEM
     Dosage: 120 MG, DAILY (120 MG, 24HR)
  15. DOCUSATE [Concomitant]
     Active Substance: DOCUSATE
     Dosage: 100 MG, UNK
  16. FERROUS SULFATE [Concomitant]
     Active Substance: FERROUS SULFATE
     Dosage: 324 MG, UNK
     Dates: start: 2017
  17. FOLACIN-K [Concomitant]
     Indication: Supplementation therapy
     Dosage: 1 MG, 1X/DAY
     Route: 048
     Dates: start: 2013
  18. FOLACIN-K [Concomitant]
     Dosage: 1 MG, 1X/DAY
     Route: 048
     Dates: start: 20190810
  19. FUROSEMIDE [Concomitant]
     Active Substance: FUROSEMIDE
     Dosage: 40 MG, UNK
     Dates: start: 2012
  20. NEURONTIN [Concomitant]
     Active Substance: GABAPENTIN
     Indication: Pain
     Dosage: UNK
     Dates: start: 2016
  21. NEURONTIN [Concomitant]
     Active Substance: GABAPENTIN
     Dosage: 100 MG, UNK
     Dates: start: 20190809
  22. NEURONTIN [Concomitant]
     Active Substance: GABAPENTIN
     Dosage: 300 MG, 3X/DAY
     Route: 048
     Dates: start: 20190809
  23. DILAUDID [Concomitant]
     Active Substance: HYDROMORPHONE HYDROCHLORIDE
     Indication: Pain
     Dosage: 2 MG, AS NEEDED
     Route: 048
     Dates: start: 2012
  24. DILAUDID [Concomitant]
     Active Substance: HYDROMORPHONE HYDROCHLORIDE
     Dosage: 8 MG, AS NEEDED (AS NEEDED EVERY SIX HOURS)
     Route: 048
     Dates: start: 20190809
  25. ISOSORBIDE MONONITRATE [Concomitant]
     Active Substance: ISOSORBIDE MONONITRATE
     Dosage: 30 MG, UNK
     Route: 048
  26. XALATAN [Concomitant]
     Active Substance: LATANOPROST
     Indication: Glaucoma
     Dosage: 1 GTT, 1X/DAY (INSTILL ONE DROP INTO BOTH EYES ONCE A DAY)
     Route: 047
     Dates: start: 2001
  27. XALATAN [Concomitant]
     Active Substance: LATANOPROST
     Dosage: 1 GTT, 1X/DAY (INSTILL ONE DROP INTO BOTH EYES ONCE A DAY)
     Route: 047
     Dates: start: 20190809
  28. LOPRESSOR [Concomitant]
     Active Substance: METOPROLOL TARTRATE
     Indication: Hypertension
     Dosage: 50 MG, 2X/DAY
     Route: 048
     Dates: start: 2013
  29. LOPRESSOR [Concomitant]
     Active Substance: METOPROLOL TARTRATE
     Dosage: 50 MG, 2X/DAY
     Route: 048
     Dates: start: 20190810
  30. OXYBUTYNIN [Concomitant]
     Active Substance: OXYBUTYNIN
     Dosage: 5 MG, UNK
  31. OXYCODONE HYDROCHLORIDE [Concomitant]
     Active Substance: OXYCODONE HYDROCHLORIDE
     Dosage: 10 MG, UNK
     Dates: start: 2017
  32. PROMETHAZINE [Concomitant]
     Active Substance: PROMETHAZINE HYDROCHLORIDE
     Dosage: 25 MG, AS NEEDED (TAKE ONE TABLET ONCE A DAY AS NEEDED)
  33. SIROLIMUS [Concomitant]
     Active Substance: SIROLIMUS
     Dosage: 0.5 MG, UNK
     Dates: start: 201907
  34. SIROLIMUS [Concomitant]
     Active Substance: SIROLIMUS
     Dosage: 1 MG, 2X/DAY
     Route: 048
  35. SODIUM BICARBONATE [Concomitant]
     Active Substance: SODIUM BICARBONATE
     Dosage: 650 MG, 2X/DAY
     Route: 048
     Dates: start: 2017
  36. ALDACTONE [Concomitant]
     Active Substance: SPIRONOLACTONE
     Indication: Cardiac failure congestive
     Dosage: 100 MG, 1X/DAY
     Route: 048
     Dates: start: 20190811
  37. TIMOPTIC [Concomitant]
     Active Substance: TIMOLOL MALEATE
     Indication: Glaucoma
     Dosage: 1 GTT, 1X/DAY (INSTILL 1 DROP INTO BOTH EYES ONCE A DAY AS DIRECTED)
     Route: 047
  38. TIMOPTIC [Concomitant]
     Active Substance: TIMOLOL MALEATE
     Dosage: 1 GTT, 2X/DAY (1 DROP TO BOTH EYES TWICE A DAY )
     Route: 047
     Dates: start: 20190809
  39. SULFAMETHOXAZOLE\TRIMETHOPRIM [Concomitant]
     Active Substance: SULFAMETHOXAZOLE\TRIMETHOPRIM
     Dosage: 1 DF, 3X/DAY (800-160MG TABLET)
     Route: 048
  40. VANCOMYCIN [Concomitant]
     Active Substance: VANCOMYCIN
     Dosage: UNK (125 MG/2.5 ML SOLUTION)
  41. WARFARIN [Concomitant]
     Active Substance: WARFARIN
     Dosage: 1 MG, UNK
     Dates: start: 2018
  42. BIOTIN [Concomitant]
     Active Substance: BIOTIN
     Indication: Supplementation therapy
     Dosage: 20 MG, 1X/DAY
     Route: 048
     Dates: start: 20190810
  43. DULOXETINE [Concomitant]
     Active Substance: DULOXETINE
     Dosage: 30 MG, 1X/DAY
     Route: 048
  44. ELIQUIS [Concomitant]
     Active Substance: APIXABAN
     Indication: Anticoagulant therapy
     Dosage: 5 MG, 2X/DAY
     Route: 048
     Dates: start: 20190809
  45. ELIQUIS [Concomitant]
     Active Substance: APIXABAN
     Indication: Atrial fibrillation
  46. LASIX [Concomitant]
     Active Substance: FUROSEMIDE
     Indication: Cardiac failure congestive
     Dosage: 40 MG, 1X/DAY
     Route: 048
     Dates: start: 20190810
  47. VITAMINS NOS [Concomitant]
     Active Substance: VITAMINS
     Indication: Supplementation therapy
     Dosage: 1 DF, 1X/DAY
     Route: 048
     Dates: start: 20190810
  48. SYNTHROID [Concomitant]
     Active Substance: LEVOTHYROXINE SODIUM
     Indication: Hypothyroidism
     Dosage: 137 UG, 1X/DAY
     Route: 048
     Dates: start: 20190810
  49. RESTORIL [Concomitant]
     Active Substance: TEMAZEPAM
     Indication: Insomnia
     Dosage: 7.5 MG, 1X/DAY
     Route: 048
     Dates: start: 20190810
  50. COLLAGENASE SANTYL [Concomitant]
     Active Substance: COLLAGENASE CLOSTRIDIUM HISTOLYTICUM
     Indication: Wound
     Dosage: UNK (250UNIT/GRAM)
     Route: 061
     Dates: start: 20190824
  51. ATHENOL [Concomitant]
     Indication: Pain
     Dosage: 650 MG, AS NEEDED (2 TABLETS BY MOUTH AS NEEDED EVERY FOUR HOURS)
     Route: 048
     Dates: start: 20190809
  52. CELEXA [Concomitant]
     Active Substance: CITALOPRAM HYDROBROMIDE
     Dosage: 20 MG, UNK
  53. ERGOCALCIFEROL [Concomitant]
     Active Substance: ERGOCALCIFEROL
     Dosage: 50 UG, DAILY
  54. OXYCODONE HYDROCHLORIDE [Concomitant]
     Active Substance: OXYCODONE HYDROCHLORIDE
     Dosage: 60 MG, UNK
  55. EUTHYROX [Concomitant]
     Active Substance: LEVOTHYROXINE SODIUM
     Indication: Hypothyroidism
     Dosage: 137 UG, 1X/DAY
     Route: 048
  56. LEVO-T [Concomitant]
     Active Substance: LEVOTHYROXINE SODIUM
     Indication: Hypothyroidism
     Dosage: 137 UG, 1X/DAY
     Route: 048
  57. FOLVITE [FOLIC ACID] [Concomitant]
     Indication: Supplementation therapy
     Dosage: 1 MG, 1X/DAY
     Route: 048
  58. STRESS B COMPLEX [Concomitant]
     Indication: Supplementation therapy
     Dosage: 1 DF, 1X/DAY
     Route: 048
  59. MAPAP [Concomitant]
     Active Substance: ACETAMINOPHEN
     Indication: Pain
     Dosage: 650 MG, AS NEEDED (2 TABLETS BY MOUTH AS NEEDED EVERY FOUR HOURS)
     Route: 048
  60. PROGRAF [Concomitant]
     Active Substance: TACROLIMUS
     Indication: Immunosuppression
     Dosage: 1 MG, 2X/DAY
     Route: 048
  61. HECORIA [Concomitant]
     Active Substance: TACROLIMUS
     Dosage: 1 MG, 2X/DAY
     Route: 048

REACTIONS (2)
  - Fall [Not Recovered/Not Resolved]
  - Skin cancer [Not Recovered/Not Resolved]

NARRATIVE: CASE EVENT DATE: 20130101
